FAERS Safety Report 10519579 (Version 2)
Quarter: 2015Q1

REPORT INFORMATION
  Report Type: Spontaneous
  Country: IT (occurrence: IT)
  Receive Date: 20141015
  Receipt Date: 20150127
  Transmission Date: 20150720
  Serious: Yes (Hospitalization)
  Sender: FDA-Public Use
  Company Number: IT-SA-2014SA138704

PATIENT
  Age: 90 Year
  Sex: Female

DRUGS (7)
  1. QUETIAPINE [Concomitant]
     Active Substance: QUETIAPINE
  2. LANOXIN [Suspect]
     Active Substance: DIGOXIN
     Dosage: STRENGTH-0,125 MG TABLET
     Route: 048
     Dates: start: 20090301, end: 20140605
  3. NORMIX [Concomitant]
     Active Substance: RIFAXIMIN
  4. CARDIOASPIRIN [Concomitant]
     Active Substance: ASPIRIN
  5. APROVEL [Suspect]
     Active Substance: IRBESARTAN
     Indication: HYPERTENSION
     Route: 048
     Dates: start: 20090330, end: 20140605
  6. PANTOPRAZOLE SODIUM [Concomitant]
     Active Substance: PANTOPRAZOLE SODIUM
  7. ALPRAZOLAM. [Concomitant]
     Active Substance: ALPRAZOLAM

REACTIONS (4)
  - Acute kidney injury [Recovered/Resolved]
  - Hypotension [Recovered/Resolved]
  - Toxicity to various agents [Recovered/Resolved]
  - Sinus bradycardia [Recovered/Resolved]

NARRATIVE: CASE EVENT DATE: 20140605
